FAERS Safety Report 7742774-8 (Version None)
Quarter: 2011Q3

REPORT INFORMATION
  Report Type: 
  Country: None (occurrence: None)
  Receive Date: 20110912
  Receipt Date: 20110901
  Transmission Date: 20111222
  Serious: Yes (Other)
  Sender: FDA-Public Use
  Company Number: CA-AMGEN-CANSP2011044341

PATIENT
  Age: 50 Year
  Sex: Male
  Weight: 82 kg

DRUGS (3)
  1. ENBREL [Suspect]
     Indication: ANKYLOSING SPONDYLITIS
     Dosage: UNK
     Dates: start: 20090701, end: 20110831
  2. CELEBREX [Concomitant]
     Indication: ANKYLOSING SPONDYLITIS
     Dosage: 200 MG, BID
     Route: 048
  3. RABEPRAZOLE SODIUM [Concomitant]
     Indication: BARRETT'S OESOPHAGUS
     Dosage: 20 MG, QD

REACTIONS (1)
  - APLASIA PURE RED CELL [None]
